FAERS Safety Report 12078878 (Version 2)
Quarter: 2016Q1

REPORT INFORMATION
  Report Type: Report from Study
  Country: US (occurrence: US)
  Receive Date: 20160216
  Receipt Date: 20160331
  Transmission Date: 20160526
  Serious: Yes (Death, Life-Threatening, Hospitalization)
  Sender: FDA-Public Use
  Company Number: PHHO2016US000753

PATIENT
  Age: 73 Year
  Sex: Female
  Weight: 57 kg

DRUGS (9)
  1. POTASSIUM CHLORIDE. [Concomitant]
     Active Substance: POTASSIUM CHLORIDE
     Indication: SUPPLEMENTATION THERAPY
     Dosage: 20 MEQ, QD
     Route: 048
     Dates: start: 20120810, end: 20160108
  2. BISOPROLOL FUMARATE AND HYDROCHLOROTHIAZIDE [Concomitant]
     Active Substance: BISOPROLOL FUMARATE\HYDROCHLOROTHIAZIDE
     Indication: HYPERTENSION
     Dosage: 10 MG, BID (10-6.25 MG)
     Route: 065
     Dates: start: 1998, end: 20160108
  3. TASIGNA [Suspect]
     Active Substance: NILOTINIB
     Indication: CHRONIC MYELOID LEUKAEMIA
     Dosage: 300 MG, BID
     Route: 048
     Dates: start: 20131028
  4. TASIGNA [Suspect]
     Active Substance: NILOTINIB
     Dosage: NO TREATMENT
     Route: 065
     Dates: start: 20131108, end: 20131124
  5. ASPIRIN. [Concomitant]
     Active Substance: ASPIRIN
     Indication: CARDIAC DISORDER
     Dosage: 81 MG, QD
     Route: 048
     Dates: start: 20131125, end: 20160108
  6. TASIGNA [Suspect]
     Active Substance: NILOTINIB
     Dosage: NO TREATMENT
     Route: 065
     Dates: start: 20141025, end: 20150125
  7. BENICAR [Concomitant]
     Active Substance: OLMESARTAN MEDOXOMIL
     Indication: HYPERTENSION
     Dosage: 20 MG, QD
     Route: 048
     Dates: start: 20150120, end: 20160108
  8. DIGOXIN. [Concomitant]
     Active Substance: DIGOXIN
     Indication: ANGINA PECTORIS
     Dosage: 250 UG, QD
     Route: 048
     Dates: start: 20131108, end: 20160108
  9. TASIGNA [Suspect]
     Active Substance: NILOTINIB
     Dosage: 300 MG, BID
     Route: 048
     Dates: end: 20160108

REACTIONS (3)
  - Atrial fibrillation [Not Recovered/Not Resolved]
  - Myocardial infarction [Not Recovered/Not Resolved]
  - Respiratory failure [Fatal]

NARRATIVE: CASE EVENT DATE: 20160109
